FAERS Safety Report 4595833-5 (Version None)
Quarter: 2005Q1

REPORT INFORMATION
  Report Type: 
  Country: None (occurrence: None)
  Receive Date: 20050224
  Receipt Date: 20050224
  Transmission Date: 20050727
  Serious: Yes (Life-Threatening, Hospitalization)
  Sender: FDA-Public Use
  Company Number: None

PATIENT
  Age: 77 Year
  Sex: Female
  Weight: 53.6 kg

DRUGS (6)
  1. IRESSA [Suspect]
     Indication: NON-SMALL CELL LUNG CANCER
     Dosage: 250MG QD ORAL
     Route: 048
     Dates: start: 20040402, end: 20050222
  2. TAXOTERE [Suspect]
     Dosage: 75MG/M2 Q21D INTRAVENOU
     Route: 042
     Dates: start: 20040402, end: 20050708
  3. MULTI-VITAMINS [Concomitant]
  4. LEVOTHROID [Concomitant]
  5. LOMOTIL [Concomitant]
  6. SIMVASTATIN [Concomitant]

REACTIONS (6)
  - BLADDER HYPERTROPHY [None]
  - DIARRHOEA [None]
  - ELECTROLYTE IMBALANCE [None]
  - HAEMATURIA [None]
  - HYPERTONIC BLADDER [None]
  - RENAL FAILURE [None]
